FAERS Safety Report 21361683 (Version 3)
Quarter: 2022Q4

REPORT INFORMATION
  Report Type: Report from Study
  Country: FR (occurrence: FR)
  Receive Date: 20220921
  Receipt Date: 20221122
  Transmission Date: 20230113
  Serious: Yes (Death, Hospitalization, Other)
  Sender: FDA-Public Use
  Company Number: FR-BRISTOL-MYERS SQUIBB COMPANY-2022-109905

PATIENT
  Age: 68 Year
  Sex: Male

DRUGS (1)
  1. NIVOLUMAB [Suspect]
     Active Substance: NIVOLUMAB
     Indication: Renal cell carcinoma
     Dosage: 480 MILLIGRAM, Q4WK
     Route: 042
     Dates: start: 20190307, end: 20190404

REACTIONS (7)
  - Shock haemorrhagic [Unknown]
  - Malignant neoplasm progression [Fatal]
  - Haematemesis [Unknown]
  - Vena cava thrombosis [Not Recovered/Not Resolved]
  - Device related sepsis [Unknown]
  - Gastrointestinal necrosis [Recovered/Resolved]
  - Intestinal obstruction [Recovered/Resolved]

NARRATIVE: CASE EVENT DATE: 20210429
